FAERS Safety Report 14106983 (Version 1)
Quarter: 2017Q4

REPORT INFORMATION
  Report Type: Report from Study
  Country: CA (occurrence: CA)
  Receive Date: 20171019
  Receipt Date: 20171019
  Transmission Date: 20180321
  Serious: Yes (Other)
  Sender: FDA-Public Use
  Company Number: CA-AMGEN-CANSL2017157082

PATIENT
  Age: 60 Year
  Sex: Female

DRUGS (4)
  1. NEULASTA [Suspect]
     Active Substance: PEGFILGRASTIM
     Indication: PRODUCT USED FOR UNKNOWN INDICATION
     Dosage: UNK (6 MG/0.6 ML SYRINGE)
     Route: 065
     Dates: start: 20170901, end: 2017
  2. EPIRUBICIN [Concomitant]
     Active Substance: EPIRUBICIN
     Dosage: UNK
     Dates: start: 2017
  3. OXALIPLATIN. [Concomitant]
     Active Substance: OXALIPLATIN
     Dosage: UNK
     Dates: start: 2017
  4. 5 FU [Concomitant]
     Active Substance: FLUOROURACIL
     Dosage: UNK
     Dates: start: 2017

REACTIONS (10)
  - Muscle contractions involuntary [Recovered/Resolved]
  - Nausea [Recovered/Resolved]
  - Eye discharge [Recovered/Resolved]
  - Peripheral swelling [Recovered/Resolved]
  - Pain [Recovered/Resolved]
  - Gait inability [Recovered/Resolved]
  - Neuropathy peripheral [Recovered/Resolved]
  - Arthralgia [Recovered/Resolved]
  - Gastrointestinal motility disorder [Recovered/Resolved]
  - Onychalgia [Recovered/Resolved]

NARRATIVE: CASE EVENT DATE: 2017
